FAERS Safety Report 4719239-0 (Version None)
Quarter: 2005Q3

REPORT INFORMATION
  Report Type: 
  Country: None (occurrence: None)
  Receive Date: 20050719
  Receipt Date: 20050708
  Transmission Date: 20060218
  Serious: Yes (Life-Threatening, Hospitalization)
  Sender: FDA-Public Use
  Company Number: 2005080674

PATIENT
  Age: 70 Year
  Sex: Female
  Weight: 60 kg

DRUGS (5)
  1. UNASYN [Suspect]
     Indication: ILL-DEFINED DISORDER
     Dosage: 3 GRAM (1.5 GRAM, 2 IN 1 D), INTRAVENOUS
     Route: 042
     Dates: start: 20050509, end: 20050516
  2. FLOMOX (CEFCAPENE PIVOXIL HYDROCHLORIDE) [Suspect]
     Indication: INFECTION
     Dosage: 100 MG (3 IN 1 D), ORAL
     Route: 048
     Dates: start: 20050517, end: 20050523
  3. LOXONIN (LOXOPROFEN SODIUM) [Suspect]
     Indication: ILL-DEFINED DISORDER
     Dosage: 180 MG (60 MG, 3 IN 1 ), ORAL
     Route: 048
     Dates: start: 20050517, end: 20050523
  4. PANSOPROIN (CEFOTIAM HYDROCHLORIDE) [Concomitant]
  5. ALL OTHER THERAPEUTIC PRODUCTS (ALL OTHER THERAPEUTIC PRODUCTS [Concomitant]

REACTIONS (3)
  - HAEMATURIA [None]
  - IDIOPATHIC THROMBOCYTOPENIC PURPURA [None]
  - TRANSFUSION REACTION [None]
